FAERS Safety Report 9869934 (Version 1)
Quarter: 2014Q1

REPORT INFORMATION
  Report Type: Spontaneous
  Country: FR (occurrence: FR)
  Receive Date: 20140205
  Receipt Date: 20140205
  Transmission Date: 20141002
  Serious: Yes (Hospitalization)
  Sender: FDA-Public Use
  Company Number: FR-ABBVIE-14P-056-1196573-00

PATIENT
  Age: 85 Year
  Sex: Female

DRUGS (1)
  1. MICROPAKINE [Suspect]
     Indication: PRODUCT USED FOR UNKNOWN INDICATION
     Route: 048
     Dates: start: 20131108, end: 20131122

REACTIONS (2)
  - Extrapyramidal disorder [Recovered/Resolved]
  - Dementia [Recovered/Resolved]
